FAERS Safety Report 7808472-7 (Version None)
Quarter: 2011Q4

REPORT INFORMATION
  Report Type: 
  Country: None (occurrence: None)
  Receive Date: 20111011
  Receipt Date: 20111011
  Transmission Date: 20120403
  Serious: Yes (Hospitalization)
  Sender: FDA-Public Use
  Company Number: None

PATIENT
  Age: 87 Year
  Sex: Female
  Weight: 67.9035 kg

DRUGS (2)
  1. BENDAMUSTINE [Suspect]
     Indication: B-CELL LYMPHOMA
     Dosage: 120MG/M2, DAY 1+2, Q 21
     Dates: start: 20110913, end: 20110914
  2. RITUXIMAB [Suspect]
     Indication: B-CELL LYMPHOMA
     Dosage: 375MG/M2, DAY 1 Q 21 DAY
     Dates: start: 20110913

REACTIONS (2)
  - BLOOD SODIUM DECREASED [None]
  - CARDIAC FAILURE [None]
